FAERS Safety Report 6258563-X (Version None)
Quarter: 2009Q3

REPORT INFORMATION
  Report Type: 
  Country: None (occurrence: None)
  Receive Date: 20090707
  Receipt Date: 20090702
  Transmission Date: 20100115
  Serious: Yes (Death, Hospitalization)
  Sender: FDA-Public Use
  Company Number: DE-ROCHE-472826

PATIENT
  Age: 67 Year
  Sex: Female
  Weight: 77 kg

DRUGS (12)
  1. CAPECITABINE [Suspect]
     Route: 048
     Dates: start: 20061002, end: 20061128
  2. CAPECITABINE [Suspect]
     Dosage: DOSE REDUCED ON 8TH DAY OF THRID CYCLE TO 1800 MG TWICE A DAY
     Route: 048
     Dates: end: 20061128
  3. ZOFRAN [Suspect]
     Indication: ANTIEMETIC SUPPORTIVE CARE
     Route: 048
  4. PARACETAMOL [Concomitant]
     Indication: PAIN
     Route: 048
  5. LYRICA [Concomitant]
     Indication: PAIN
     Route: 048
  6. HALDOL [Concomitant]
     Indication: PAIN
     Route: 048
  7. TAVOR [Concomitant]
     Dosage: UNIT REPORTED AS 1/D.
  8. FORTECORTIN [Concomitant]
     Dosage: UNIT REPORTED AS 3/D.
  9. LACTULOSE [Concomitant]
     Route: 048
  10. LAXANS [Concomitant]
     Dosage: DOSE: DROPS. UNIT REPORTED AS 8 DROPS
     Route: 048
  11. ENOXAPARIN SODIUM [Concomitant]
     Indication: THROMBOSIS PROPHYLAXIS
     Route: 058
  12. SEVREDOL [Concomitant]
     Indication: PAIN
     Route: 048

REACTIONS (4)
  - DYSPNOEA [None]
  - GENERAL PHYSICAL HEALTH DETERIORATION [None]
  - MALIGNANT PLEURAL EFFUSION [None]
  - TUMOUR PAIN [None]
